FAERS Safety Report 10467648 (Version 1)
Quarter: 2014Q3

REPORT INFORMATION
  Report Type: Spontaneous
  Country: US (occurrence: US)
  Receive Date: 20140922
  Receipt Date: 20140922
  Transmission Date: 20150326
  Serious: Yes (Hospitalization)
  Sender: FDA-Public Use
  Company Number: US-B.I. PHARMACEUTICALS,INC./RIDGEFIELD-2014-BI-44501BP

PATIENT
  Age: 72 Year
  Sex: Female

DRUGS (1)
  1. PRADAXA [Suspect]
     Active Substance: DABIGATRAN ETEXILATE MESYLATE
     Indication: ATRIAL FIBRILLATION
     Dosage: 75 MG
     Route: 048
     Dates: end: 20140207

REACTIONS (7)
  - Atrial fibrillation [Recovered/Resolved]
  - Pneumonia aspiration [Not Recovered/Not Resolved]
  - Blood pressure increased [Unknown]
  - Epistaxis [Unknown]
  - Fluid retention [Unknown]
  - Adverse event [Unknown]
  - Rash [Unknown]

NARRATIVE: CASE EVENT DATE: 201402
